FAERS Safety Report 25174832 (Version 1)
Quarter: 2025Q2

REPORT INFORMATION
  Report Type: Spontaneous
  Country: FI (occurrence: FI)
  Receive Date: 20250408
  Receipt Date: 20250408
  Transmission Date: 20250716
  Serious: Yes (Death, Other)
  Sender: PFIZER
  Company Number: None

PATIENT
  Age: 59 Year
  Sex: Female

DRUGS (7)
  1. RITUXIMAB [Suspect]
     Active Substance: RITUXIMAB
     Indication: Stiff person syndrome
     Route: 042
     Dates: start: 20170309, end: 20250219
  2. SODIUM CHLORIDE [Suspect]
     Active Substance: SODIUM CHLORIDE
     Route: 042
     Dates: start: 20170309, end: 20250219
  3. DONEPEZIL KRKA [Concomitant]
     Indication: Memory impairment
     Dosage: 5 MG 1X1
     Route: 048
     Dates: start: 2025
  4. ASPIRIN [Concomitant]
     Active Substance: ASPIRIN
     Indication: Cerebral infarction
     Dosage: 100 MG, 1X/DAY
     Route: 048
     Dates: start: 2019
  5. CLONAZEPAM [Concomitant]
     Active Substance: CLONAZEPAM
     Indication: Stiff person syndrome
     Dosage: 0.5 MG, 2X/DAY
     Route: 048
     Dates: start: 2016
  6. SERTRALINE [Concomitant]
     Active Substance: SERTRALINE HYDROCHLORIDE
     Indication: Depression
     Dosage: 150 MG, 1X/DAY
     Route: 048
     Dates: start: 202108
  7. VENLAFAXINE [Concomitant]
     Active Substance: VENLAFAXINE HYDROCHLORIDE
     Indication: Depression
     Dosage: 75 MG, 1X/DAY
     Route: 048
     Dates: start: 202410

REACTIONS (2)
  - Organising pneumonia [Fatal]
  - Off label use [Unknown]

NARRATIVE: CASE EVENT DATE: 20250219
